FAERS Safety Report 5992017-0 (Version None)
Quarter: 2008Q4

REPORT INFORMATION
  Report Type: 
  Country: None (occurrence: None)
  Receive Date: 20081211
  Receipt Date: 20081209
  Transmission Date: 20090506
  Serious: Yes (Other)
  Sender: FDA-Public Use
  Company Number: TN-ROXANE LABORATORIES, INC.-2008-RO-00392RO

PATIENT
  Age: 50 Year
  Sex: Female

DRUGS (2)
  1. FLUCONAZOLE [Suspect]
     Indication: VAGINAL INFECTION
  2. FLUCONAZOLE [Suspect]

REACTIONS (1)
  - RASH ERYTHEMATOUS [None]
